FAERS Safety Report 9358827 (Version 2)
Quarter: 2013Q4

REPORT INFORMATION
  Report Type: Spontaneous
  Country: US (occurrence: US)
  Receive Date: 20130620
  Receipt Date: 20131212
  Transmission Date: 20140711
  Serious: Yes (Hospitalization)
  Sender: FDA-Public Use
  Company Number: US-B.I. PHARMACEUTICALS,INC./RIDGEFIELD-2013-BI-17215BP

PATIENT
  Sex: Female
  Weight: 72.57 kg

DRUGS (12)
  1. PRADAXA [Suspect]
     Indication: ANTICOAGULANT THERAPY
     Dosage: 300 MG
     Route: 048
     Dates: start: 20120531, end: 20121012
  2. PRADAXA [Suspect]
     Indication: ATRIAL FIBRILLATION
  3. METOPROLOL [Concomitant]
     Dosage: 100 MG
     Route: 048
  4. LISINOPRIL [Concomitant]
     Dosage: 10 MG
     Route: 048
  5. MELOXICAM [Concomitant]
     Route: 048
  6. PRESERVISION [Concomitant]
  7. MULTIVITAMIN [Concomitant]
  8. FISH OIL [Concomitant]
  9. CARTIA XT [Concomitant]
     Dosage: 120 MG
     Route: 048
  10. FUROSEMIDE [Concomitant]
     Dosage: 40 MG
     Route: 048
  11. LYRICA [Concomitant]
     Dosage: 100 MG
     Route: 048
  12. BENZONATATE [Concomitant]
     Dosage: 300 MG
     Route: 048

REACTIONS (3)
  - Gastrointestinal haemorrhage [Unknown]
  - Haemorrhagic anaemia [Unknown]
  - Blood urine present [Unknown]
